FAERS Safety Report 6429445-5 (Version None)
Quarter: 2009Q4

REPORT INFORMATION
  Report Type: 
  Country: None (occurrence: None)
  Receive Date: 20091105
  Receipt Date: 20090608
  Transmission Date: 20100525
  Serious: Yes (Other)
  Sender: FDA-Public Use
  Company Number: US-ABBOTT-09P-163-0578448-00

PATIENT
  Sex: Female
  Weight: 109.87 kg

DRUGS (9)
  1. KALETRA [Suspect]
     Indication: HIV INFECTION
     Dates: start: 20060901
  2. VIREAD [Concomitant]
     Indication: HIV INFECTION
  3. ZIAGEN [Concomitant]
     Indication: HIV INFECTION
  4. HYDROCHLOROTHIAZIDE [Concomitant]
     Indication: HYPERTENSION
  5. XANAX [Concomitant]
     Indication: ANXIETY
     Dosage: 1 MG PILLS
  6. ZOLOFT [Concomitant]
     Indication: DEPRESSION
  7. AMBIEN [Concomitant]
     Indication: INSOMNIA
  8. INSULIN [Concomitant]
     Indication: DIABETES MELLITUS
     Dosage: 70/30    60 UNITS IN THE AM   25 IN THE PM
  9. LISINOPRIL [Concomitant]
     Indication: HYPERTENSION

REACTIONS (7)
  - BACK PAIN [None]
  - BLOOD GLUCOSE INCREASED [None]
  - EATING DISORDER [None]
  - LOSS OF CONSCIOUSNESS [None]
  - SHOULDER OPERATION [None]
  - TOOTH LOSS [None]
  - WEIGHT INCREASED [None]
